FAERS Safety Report 7282890-0 (Version None)
Quarter: 2011Q1

REPORT INFORMATION
  Report Type: 
  Country: None (occurrence: None)
  Receive Date: 20110209
  Receipt Date: 20110201
  Transmission Date: 20110831
  Serious: Yes (Other)
  Sender: FDA-Public Use
  Company Number: US-JNJFOC-20110202292

PATIENT
  Sex: Female

DRUGS (1)
  1. LEVAQUIN [Suspect]
     Indication: PRODUCT USED FOR UNKNOWN INDICATION
     Route: 048

REACTIONS (6)
  - SWOLLEN TONGUE [None]
  - DYSPNOEA [None]
  - HALLUCINATION [None]
  - DIZZINESS [None]
  - NAUSEA [None]
  - BALANCE DISORDER [None]
